FAERS Safety Report 16373668 (Version 1)
Quarter: 2019Q2

REPORT INFORMATION
  Report Type: Spontaneous
  Country: GB (occurrence: GB)
  Receive Date: 20190530
  Receipt Date: 20190530
  Transmission Date: 20190711
  Serious: Yes (Life-Threatening)
  Sender: FDA-Public Use
  Company Number: GB-TEVA-2019-GB-1056238

PATIENT
  Age: 82 Year
  Sex: Female
  Weight: 55 kg

DRUGS (13)
  1. OMEPRAZOLE. [Concomitant]
     Active Substance: OMEPRAZOLE
     Dates: start: 20170804
  2. FUROSEMIDE. [Concomitant]
     Active Substance: FUROSEMIDE
     Dosage: 1 DOSAGE FORM FOR EVERY 1 DAYS MORNING
     Dates: start: 20181204
  3. WARFARIN SODIUM. [Concomitant]
     Active Substance: WARFARIN SODIUM
     Dosage: AS DIRECTED
     Dates: start: 20120430
  4. HYDRALAZINE [Concomitant]
     Active Substance: HYDRALAZINE HYDROCHLORIDE
     Dosage: 2 DOSAGE FORM FOR EVERY 1 DAYS
     Dates: start: 20190424
  5. FERROUS SULFATE. [Concomitant]
     Active Substance: FERROUS SULFATE
     Dosage: 3 DOSAGE FORM FOR EVERY 1 DAYS
     Dates: start: 20180601
  6. BUMETANIDE. [Concomitant]
     Active Substance: BUMETANIDE
     Dosage: 5 DOSAGE FORMS FOR EVERY 34 DAYS
     Dates: start: 20190212, end: 20190318
  7. CARVEDILOL. [Concomitant]
     Active Substance: CARVEDILOL
     Dosage: 2 DOSAGE FORM FOR EVERY 1 DAYS
     Dates: start: 20190112
  8. SPIRONOLACTONE. [Suspect]
     Active Substance: SPIRONOLACTONE
     Dosage: 100 MILLIGRAM FOR EVERY 1 DAYS
     Dates: start: 20190212
  9. SODIUM HYDROGEN CARBONATE [Concomitant]
     Active Substance: SODIUM BICARBONATE
     Dates: start: 20171030
  10. CORSODYL [Concomitant]
     Active Substance: CHLORHEXIDINE GLUCONATE
     Dosage: USE TWICE DAILY
     Dates: start: 20170821
  11. MULTIVITAMIN [Concomitant]
     Active Substance: VITAMINS
     Dosage: 1 DOSAGE FORM FOR EVERY 1 DAYS
     Dates: start: 20190218
  12. LOPERAMIDE [Concomitant]
     Active Substance: LOPERAMIDE
     Dosage: 4 DOSAGE FORM FOR EVERY 1 DAYS
     Dates: start: 20171025
  13. FOLIC ACID. [Concomitant]
     Active Substance: FOLIC ACID
     Dosage: 1 DOSAGE FORM FOR EVERY 1 DAYS
     Dates: start: 20170512

REACTIONS (2)
  - Acute kidney injury [Recovering/Resolving]
  - Hyperkalaemia [Recovering/Resolving]
